FAERS Safety Report 13351509 (Version 1)
Quarter: 2017Q1

REPORT INFORMATION
  Report Type: Spontaneous
  Country: JP (occurrence: JP)
  Receive Date: 20170320
  Receipt Date: 20170320
  Transmission Date: 20170429
  Serious: Yes (Other)
  Sender: FDA-Public Use
  Company Number: JP-BAYER-2017-048099

PATIENT
  Age: 31 Year
  Sex: Female

DRUGS (2)
  1. ACETYLSALICYLIC ACID({=100 MG) [Suspect]
     Active Substance: ASPIRIN
     Indication: THROMBOSIS PROPHYLAXIS
     Dosage: UNK
     Route: 048
     Dates: start: 201107
  2. WARFARIN POTASSIUM [Interacting]
     Active Substance: WARFARIN POTASSIUM
     Indication: THROMBOSIS PROPHYLAXIS
     Dosage: UNK
     Route: 048
     Dates: start: 201107

REACTIONS (5)
  - Drug administration error [None]
  - Ovarian haemorrhage [None]
  - Contraindicated product administered [None]
  - Medical device site thrombosis [Recovering/Resolving]
  - Labelled drug-drug interaction medication error [None]

NARRATIVE: CASE EVENT DATE: 2014
